FAERS Safety Report 5850612-3 (Version None)
Quarter: 2008Q3

REPORT INFORMATION
  Report Type: 
  Country: None (occurrence: None)
  Receive Date: 20080818
  Receipt Date: 20080808
  Transmission Date: 20090109
  Serious: Yes (Hospitalization)
  Sender: FDA-Public Use
  Company Number: WAES 0802GBR00082

PATIENT
  Age: 53 Year
  Sex: Female

DRUGS (5)
  1. CANCIDAS [Suspect]
     Indication: FUNGAL INFECTION
     Dosage: 70 MG/1X INJ
     Dates: start: 20061019, end: 20061019
  2. ACETAMINOPHEN [Concomitant]
  3. ALBUTEROL SULFATE [Concomitant]
  4. ATENOLOL [Concomitant]
  5. ATORVASTATIN CALCIUM [Concomitant]

REACTIONS (4)
  - GENERALISED OEDEMA [None]
  - OEDEMA [None]
  - RASH [None]
  - SKIN LESION [None]
